FAERS Safety Report 9199254 (Version 1)
Quarter: 2013Q1

REPORT INFORMATION
  Report Type: Spontaneous
  Country: US (occurrence: US)
  Receive Date: 20130329
  Receipt Date: 20130329
  Transmission Date: 20140127
  Serious: No
  Sender: FDA-Public Use
  Company Number: US-PFIZER INC-2013101043

PATIENT
  Age: 54 Year
  Sex: Female
  Weight: 50.34 kg

DRUGS (2)
  1. GEODON [Suspect]
     Indication: BIPOLAR DISORDER
     Dosage: 40 MG, 2X/DAY
     Route: 048
  2. WELLBUTRIN [Suspect]
     Dosage: UNK

REACTIONS (1)
  - Tremor [Unknown]
